FAERS Safety Report 4952581-7 (Version None)
Quarter: 2006Q1

REPORT INFORMATION
  Report Type: 
  Country: None (occurrence: None)
  Receive Date: 20060317
  Receipt Date: 20060302
  Transmission Date: 20060701
  Serious: Yes (Hospitalization)
  Sender: FDA-Public Use
  Company Number: JP200602004169

PATIENT
  Age: 70 Year
  Sex: Male

DRUGS (1)
  1. HUMULIN R [Suspect]
     Indication: CHRONIC MYELOID LEUKAEMIA
     Dosage: INTRAVENOUS
     Route: 042
     Dates: start: 20060130, end: 20060210

REACTIONS (1)
  - RASH GENERALISED [None]
